FAERS Safety Report 9438264 (Version 1)
Quarter: 2013Q3

REPORT INFORMATION
  Report Type: Spontaneous
  Country: US (occurrence: US)
  Receive Date: 20130802
  Receipt Date: 20130802
  Transmission Date: 20140515
  Serious: No
  Sender: FDA-Public Use
  Company Number: US-BRISTOL-MYERS SQUIBB COMPANY-17002197

PATIENT
  Age: 74 Year
  Sex: Female

DRUGS (13)
  1. COUMADIN [Suspect]
     Indication: ATRIAL FIBRILLATION
     Dosage: DOSE REDUCED TO 2.5MG ON ALTERNATE DAYS
     Route: 048
     Dates: start: 20120815
  2. METOPROLOL TARTRATE [Suspect]
     Route: 065
     Dates: start: 20120815
  3. MULTAQ [Suspect]
     Indication: ATRIAL FIBRILLATION
     Dosage: TABS
     Route: 048
     Dates: start: 20120815
  4. DIOVAN [Concomitant]
     Dosage: DOSE CHANGED TO 160MG
     Dates: start: 201208
  5. XANAX [Concomitant]
  6. LIPITOR [Concomitant]
  7. MULTIVITAMINS [Concomitant]
  8. LUTEIN [Concomitant]
  9. COENZYME-Q10 [Concomitant]
  10. PLAVIX [Concomitant]
     Dates: start: 2006, end: 20120815
  11. DIGOXIN [Concomitant]
     Dates: end: 20120815
  12. CARDIZEM [Concomitant]
  13. BETAPACE [Concomitant]

REACTIONS (2)
  - Hypotension [Recovering/Resolving]
  - Malaise [Unknown]
